FAERS Safety Report 5197191-4 (Version None)
Quarter: 2007Q1

REPORT INFORMATION
  Report Type: 
  Country: None (occurrence: None)
  Receive Date: 20070103
  Receipt Date: 20061220
  Transmission Date: 20070707
  Serious: Yes (Death)
  Sender: FDA-Public Use
  Company Number: US-ELI_LILLY_AND_COMPANY-US200612003878

PATIENT
  Sex: Male

DRUGS (1)
  1. CYMBALTA [Suspect]
     Dosage: UNK MG, UNK

REACTIONS (3)
  - ANOREXIA [None]
  - RENAL FAILURE [None]
  - RHABDOMYOLYSIS [None]
